FAERS Safety Report 13388501 (Version 1)
Quarter: 2017Q1

REPORT INFORMATION
  Report Type: Spontaneous
  Country: IT (occurrence: IT)
  Receive Date: 20170330
  Receipt Date: 20170330
  Transmission Date: 20170429
  Serious: Yes (Death, Hospitalization)
  Sender: FDA-Public Use
  Company Number: IT-PFIZER INC-2017121854

PATIENT
  Age: 86 Year
  Sex: Male

DRUGS (8)
  1. METRONIDAZOLE. [Suspect]
     Active Substance: METRONIDAZOLE
  2. FLUCONAZOLE. [Suspect]
     Active Substance: FLUCONAZOLE
  3. CLINDAMYCIN HCL [Suspect]
     Active Substance: CLINDAMYCIN HYDROCHLORIDE
  4. PIPERACILLIN/TAZOBACTAM [Suspect]
     Active Substance: PIPERACILLIN SODIUM\TAZOBACTAM SODIUM
  5. TIGECYCLINE. [Suspect]
     Active Substance: TIGECYCLINE
  6. CIPROFLOXACIN HCL [Suspect]
     Active Substance: CIPROFLOXACIN HYDROCHLORIDE
     Dosage: UNK
  7. MEROPENEM. [Suspect]
     Active Substance: MEROPENEM
  8. COLISTIN [Suspect]
     Active Substance: COLISTIN

REACTIONS (2)
  - Drug ineffective [Fatal]
  - Pathogen resistance [Fatal]
